FAERS Safety Report 7242776-4 (Version None)
Quarter: 2011Q1

REPORT INFORMATION
  Report Type: 
  Country: None (occurrence: None)
  Receive Date: 20110114
  Receipt Date: 20110104
  Transmission Date: 20110831
  Serious: Yes (Hospitalization, Other)
  Sender: FDA-Public Use
  Company Number: 010997

PATIENT
  Sex: Female

DRUGS (8)
  1. VITAMINS NOS [Concomitant]
  2. MAALOX /00082501/ [Concomitant]
  3. PRENATAL VITAMINS /01549301/ [Suspect]
     Indication: VITAMIN SUPPLEMENTATION
     Dosage: ORAL
     Route: 048
     Dates: end: 20100101
  4. FIORICET [Concomitant]
  5. MAGNESIUM CITRATE [Concomitant]
  6. KEPPRA [Suspect]
     Indication: EPILEPSY
     Dosage: 1000 MG, 1000 MG
     Dates: start: 20100101
  7. KEPPRA [Suspect]
     Indication: EPILEPSY
     Dosage: 1000 MG, 1000 MG
     Dates: end: 20100121
  8. BENDARYL /00000402/ [Concomitant]

REACTIONS (10)
  - MALAISE [None]
  - HEADACHE [None]
  - DRUG EXPOSURE DURING PREGNANCY [None]
  - PREMATURE LABOUR [None]
  - GESTATIONAL DIABETES [None]
  - CAESAREAN SECTION [None]
  - HAEMORRHAGIC STROKE [None]
  - PREGNANCY [None]
  - DYSPEPSIA [None]
  - SUBARACHNOID HAEMORRHAGE [None]
